FAERS Safety Report 21726857 (Version 1)
Quarter: 2022Q4

REPORT INFORMATION
  Report Type: Spontaneous
  Country: US (occurrence: US)
  Receive Date: 20221214
  Receipt Date: 20221214
  Transmission Date: 20230113
  Serious: No
  Sender: FDA-Public Use
  Company Number: US-BEH-2022152875

PATIENT
  Sex: Female

DRUGS (2)
  1. HIZENTRA [Suspect]
     Active Substance: HUMAN IMMUNOGLOBULIN G
     Indication: Immunodeficiency common variable
     Dosage: 10 GRAM, QW
     Route: 058
     Dates: start: 202208
  2. HIZENTRA [Suspect]
     Active Substance: HUMAN IMMUNOGLOBULIN G
     Indication: Idiopathic urticaria

REACTIONS (8)
  - Tinnitus [Unknown]
  - Temperature intolerance [Unknown]
  - Decreased appetite [Unknown]
  - Pain [Unknown]
  - Pruritus [Unknown]
  - Swelling [Unknown]
  - No adverse event [Unknown]
  - Off label use [Unknown]
